FAERS Safety Report 9781930 (Version 1)
Quarter: 2013Q4

REPORT INFORMATION
  Report Type: Spontaneous
  Country: US (occurrence: US)
  Receive Date: 20131225
  Receipt Date: 20131225
  Transmission Date: 20140711
  Serious: No
  Sender: FDA-Public Use
  Company Number: US-B.I. PHARMACEUTICALS,INC./RIDGEFIELD-2013-BI-42077BP

PATIENT
  Age: 69 Year
  Sex: Male
  Weight: 149 kg

DRUGS (1)
  1. PRADAXA [Suspect]
     Indication: POSTOPERATIVE CARE
     Dosage: 300 MG
     Route: 048
     Dates: start: 201302

REACTIONS (1)
  - Off label use [Unknown]
